FAERS Safety Report 17716444 (Version 4)
Quarter: 2020Q3

REPORT INFORMATION
  Report Type: Spontaneous
  Country: US (occurrence: US)
  Receive Date: 20200428
  Receipt Date: 20200918
  Transmission Date: 20201102
  Serious: No
  Sender: FDA-Public Use
  Company Number: US-TEVA-2020-US-1229950

PATIENT
  Age: 62 Year
  Sex: Male

DRUGS (1)
  1. AUSTEDO [Suspect]
     Active Substance: DEUTETRABENAZINE
     Indication: CHOREA
     Dosage: 48 MILLIGRAM DAILY;
     Route: 065
     Dates: start: 2020

REACTIONS (5)
  - Weight decreased [Recovering/Resolving]
  - Chorea [Recovering/Resolving]
  - Dysphagia [Unknown]
  - Speech disorder [Unknown]
  - Lethargy [Unknown]
